FAERS Safety Report 7056663-8 (Version None)
Quarter: 2010Q4

REPORT INFORMATION
  Report Type: 
  Country: None (occurrence: None)
  Receive Date: 20101019
  Receipt Date: 20101004
  Transmission Date: 20110411
  Serious: Yes (Hospitalization)
  Sender: FDA-Public Use
  Company Number: 2010P1001966

PATIENT
  Sex: Female

DRUGS (1)
  1. FENTANYL-25 [Suspect]
     Indication: OSTEOARTHRITIS
     Dosage: TDER
     Route: 062

REACTIONS (4)
  - ABDOMINAL PAIN [None]
  - CONSTIPATION [None]
  - DYSPEPSIA [None]
  - VOMITING [None]
